FAERS Safety Report 18018799 (Version 1)
Quarter: 2020Q3

REPORT INFORMATION
  Report Type: Spontaneous
  Country: US (occurrence: US)
  Receive Date: 20200713
  Receipt Date: 20200713
  Transmission Date: 20201103
  Serious: Yes (Hospitalization)
  Sender: FDA-Public Use
  Company Number: None

PATIENT
  Sex: Female

DRUGS (12)
  1. JEVITY [Concomitant]
     Active Substance: DIETARY SUPPLEMENT
  2. ALLOPURINOL. [Concomitant]
     Active Substance: ALLOPURINOL
  3. FAMOTIDINE. [Concomitant]
     Active Substance: FAMOTIDINE
  4. FLUCONAZOLE. [Concomitant]
     Active Substance: FLUCONAZOLE
  5. NEPHRONEX [Concomitant]
  6. NYSTOP [Concomitant]
     Active Substance: NYSTATIN
  7. VITAMIN D [Concomitant]
     Active Substance: VITAMIN D NOS
  8. FERROUS SULFATE. [Concomitant]
     Active Substance: FERROUS SULFATE
  9. LOKELMA [Suspect]
     Active Substance: SODIUM ZIRCONIUM CYCLOSILICATE
     Indication: PRODUCT USED FOR UNKNOWN INDICATION
     Dosage: ?          OTHER FREQUENCY:EVERY OTHER DAY;?
     Route: 048
     Dates: start: 20200521
  10. ACETAMINOPHEN. [Concomitant]
     Active Substance: ACETAMINOPHEN
  11. METOPROLOL. [Concomitant]
     Active Substance: METOPROLOL
  12. BACLOFEN. [Concomitant]
     Active Substance: BACLOFEN

REACTIONS (2)
  - Oedema [None]
  - Confusional state [None]
